FAERS Safety Report 4902348-0 (Version None)
Quarter: 2006Q1

REPORT INFORMATION
  Report Type: 
  Country: None (occurrence: None)
  Receive Date: 20060202
  Receipt Date: 20060116
  Transmission Date: 20060701
  Serious: Yes (Hospitalization)
  Sender: FDA-Public Use
  Company Number: 2006BH000688

PATIENT
  Age: 6 Month
  Sex: Female

DRUGS (2)
  1. DEXTROSE 5% [Suspect]
     Indication: FLUID REPLACEMENT
     Dosage: ONCE; IV
     Route: 042
     Dates: start: 20060113, end: 20060113
  2. SODIUM CHLORIDE [Concomitant]

REACTIONS (4)
  - BRADYCARDIA [None]
  - DEPRESSED LEVEL OF CONSCIOUSNESS [None]
  - INFUSION RELATED REACTION [None]
  - PALLOR [None]
